FAERS Safety Report 8918099 (Version 1)
Quarter: 2012Q4

REPORT INFORMATION
  Report Type: 
  Country: US (occurrence: US)
  Receive Date: 20121120
  Receipt Date: 20121120
  Transmission Date: 20130627
  Serious: No
  Sender: FDA-Public Use
  Company Number: US-ASTRAZENECA-2012SE22591

PATIENT
  Age: 45 Year
  Sex: Female

DRUGS (4)
  1. NEXIUM [Suspect]
     Route: 048
  2. NEXIUM [Suspect]
     Dosage: ONE PER DAY
     Route: 048
  3. NEXIUM [Suspect]
     Dosage: TWO PER DAY
     Route: 048
  4. INSULIN [Concomitant]

REACTIONS (6)
  - Fear of eating [Unknown]
  - Chest pain [Unknown]
  - Gastrooesophageal reflux disease [Unknown]
  - Aphagia [Unknown]
  - Weight decreased [Unknown]
  - Intentional drug misuse [Unknown]
